FAERS Safety Report 7314375-7 (Version None)
Quarter: 2011Q1

REPORT INFORMATION
  Report Type: 
  Country: None (occurrence: None)
  Receive Date: 20110225
  Receipt Date: 20100820
  Transmission Date: 20110831
  Serious: No
  Sender: FDA-Public Use
  Company Number: US-MYLANLABS-2010S1014134

PATIENT
  Age: 18 Year
  Sex: Female

DRUGS (3)
  1. AMNESTEEM [Suspect]
  2. CLARAVIS [Suspect]
  3. CLARAVIS [Suspect]

REACTIONS (1)
  - FALL [None]
